FAERS Safety Report 23128347 (Version 5)
Quarter: 2023Q4

REPORT INFORMATION
  Report Type: Spontaneous
  Country: US (occurrence: US)
  Receive Date: 20231031
  Receipt Date: 20231218
  Transmission Date: 20240109
  Serious: Yes (Other)
  Sender: FDA-Public Use
  Company Number: US-GLENMARK PHARMACEUTICALS-2023GMK086003

PATIENT

DRUGS (1)
  1. ESTRADIOL [Suspect]
     Active Substance: ESTRADIOL
     Indication: Vulvovaginal dryness
     Dosage: UNK
     Route: 067
     Dates: start: 20230710

REACTIONS (9)
  - Suspected transmission of an infectious agent via product [Unknown]
  - Suspected product contamination [Unknown]
  - Vaginal infection [Unknown]
  - Urinary tract infection [Unknown]
  - Vaginal discharge [Unknown]
  - Cystitis [Unknown]
  - Sinusitis [Unknown]
  - Product use in unapproved indication [Unknown]
  - Product quality issue [Unknown]

NARRATIVE: CASE EVENT DATE: 20230101
